FAERS Safety Report 9654847 (Version 1)
Quarter: 2013Q4

REPORT INFORMATION
  Report Type: Spontaneous
  Country: US (occurrence: US)
  Receive Date: 20131029
  Receipt Date: 20131029
  Transmission Date: 20140711
  Serious: No
  Sender: FDA-Public Use
  Company Number: US-PURDUE-USA-2012-0092144

PATIENT
  Sex: Male

DRUGS (1)
  1. OXYCONTIN TABLETS [Suspect]
     Indication: PAIN
     Dosage: 80 MG, Q12H

REACTIONS (5)
  - Respiratory tract congestion [Unknown]
  - Wrong technique in drug usage process [Unknown]
  - Medication residue present [Unknown]
  - Rhinitis [Unknown]
  - Nasal congestion [Unknown]
